FAERS Safety Report 22925176 (Version 2)
Quarter: 2023Q4

REPORT INFORMATION
  Report Type: Spontaneous
  Country: US (occurrence: US)
  Receive Date: 20230908
  Receipt Date: 20231110
  Transmission Date: 20240109
  Serious: Yes (Other)
  Sender: FDA-Public Use
  Company Number: US-INCYTE CORPORATION-2023IN009185

PATIENT

DRUGS (3)
  1. PEMAZYRE [Suspect]
     Active Substance: PEMIGATINIB
     Indication: Cholangiocarcinoma
     Dosage: UNK
     Route: 065
  2. PEMAZYRE [Suspect]
     Active Substance: PEMIGATINIB
     Dosage: THIRD CYCLE OF 14 DAYS ON, 7 DAYS OFF
     Route: 065
  3. PEMAZYRE [Suspect]
     Active Substance: PEMIGATINIB
     Dosage: DOSE ADJUSTED (LOWER)
     Route: 065

REACTIONS (6)
  - Retinal pigment epitheliopathy [Recovered/Resolved]
  - Subretinal fluid [Recovered/Resolved]
  - Cholangiocarcinoma [Unknown]
  - Ill-defined disorder [Unknown]
  - Visual impairment [Recovered/Resolved]
  - Disease progression [Unknown]
